FAERS Safety Report 9800242 (Version 2)
Quarter: 2014Q1

REPORT INFORMATION
  Report Type: Spontaneous
  Country: FR (occurrence: FR)
  Receive Date: 20140106
  Receipt Date: 20140129
  Transmission Date: 20141002
  Serious: Yes (Hospitalization)
  Sender: FDA-Public Use
  Company Number: FR-PFIZER INC-2014001722

PATIENT
  Age: 48 Year
  Sex: Female

DRUGS (2)
  1. NICORETTE INHALER [Suspect]
     Dosage: 15 PER DAY
     Route: 065
     Dates: start: 20131121
  2. XEPLION [Suspect]
     Dosage: 100 MG, UNK
     Route: 030
     Dates: start: 2012, end: 201312

REACTIONS (1)
  - Neutropenia [Unknown]
